FAERS Safety Report 25302024 (Version 2)
Quarter: 2025Q3

REPORT INFORMATION
  Report Type: Spontaneous
  Country: US (occurrence: US)
  Receive Date: 20250512
  Receipt Date: 20250723
  Transmission Date: 20251020
  Serious: No
  Sender: BRISTOL-MYERS SQUIBB COMPANY
  Company Number: US-BRISTOL-MYERS SQUIBB COMPANY-2025-067626

PATIENT
  Age: 53 Year
  Sex: Female

DRUGS (3)
  1. ORENCIA [Suspect]
     Active Substance: ABATACEPT
     Indication: Rheumatoid arthritis
     Route: 058
     Dates: start: 202501
  2. ORENCIA [Suspect]
     Active Substance: ABATACEPT
     Indication: Supraventricular tachycardia
     Route: 058
     Dates: start: 202501
  3. ORENCIA [Suspect]
     Active Substance: ABATACEPT
     Indication: Fibromyalgia

REACTIONS (4)
  - Joint swelling [Unknown]
  - Arthralgia [Unknown]
  - Mite allergy [Unknown]
  - Cockroach allergy [Unknown]

NARRATIVE: CASE EVENT DATE: 20250401
